FAERS Safety Report 8285572-1 (Version None)
Quarter: 2012Q2

REPORT INFORMATION
  Report Type: 
  Country: None (occurrence: None)
  Receive Date: 20120413
  Receipt Date: 20111208
  Transmission Date: 20120825
  Serious: No
  Sender: FDA-Public Use
  Company Number: US-ASTRAZENECA-2011SE47310

PATIENT
  Age: 64 Year
  Sex: Female

DRUGS (5)
  1. GENERIC REQUIP [Concomitant]
  2. CRESTOR [Suspect]
     Route: 048
  3. PRILOSEC [Suspect]
     Route: 048
  4. NEXIUM [Suspect]
     Route: 048
  5. LISINOPRIL [Suspect]
     Route: 048

REACTIONS (9)
  - DRUG DOSE OMISSION [None]
  - HYPERTENSION [None]
  - DYSPEPSIA [None]
  - THROAT IRRITATION [None]
  - WRONG DRUG ADMINISTERED [None]
  - RESTLESS LEGS SYNDROME [None]
  - GASTROOESOPHAGEAL REFLUX DISEASE [None]
  - PAIN [None]
  - DISCOMFORT [None]
